FAERS Safety Report 6982278-3 (Version None)
Quarter: 2010Q3

REPORT INFORMATION
  Report Type: 
  Country: None (occurrence: None)
  Receive Date: 20100914
  Receipt Date: 20091211
  Transmission Date: 20110219
  Serious: No
  Sender: FDA-Public Use
  Company Number: US-PFIZER INC-2009309819

PATIENT
  Sex: Female
  Weight: 58.9 kg

DRUGS (7)
  1. LYRICA [Suspect]
     Indication: NEURALGIA
     Dosage: 100 MG, 1X/DAY
     Route: 048
     Dates: start: 20090301
  2. DESIPRAMINE [Concomitant]
     Indication: ANXIETY
     Dosage: 150 MG, 1X/DAY
  3. KLONOPIN [Concomitant]
     Indication: ANXIETY
     Dosage: 1 MG, 1X/DAY
     Route: 048
  4. FOSAMAX [Concomitant]
     Indication: BONE DENSITY ABNORMAL
     Dosage: 30 MG, WEEKLY
     Route: 048
  5. MONTELUKAST SODIUM [Concomitant]
     Indication: HYPERSENSITIVITY
     Dosage: 10 MG, 1X/DAY
     Route: 048
  6. IBUPROFEN [Concomitant]
     Indication: PAIN
     Dosage: 200 MG, UNK
     Route: 048
  7. IBUPROFEN [Concomitant]
     Indication: HEADACHE

REACTIONS (2)
  - BLOOD CHOLESTEROL INCREASED [None]
  - DISCOMFORT [None]
